FAERS Safety Report 16801860 (Version 1)
Quarter: 2019Q3

REPORT INFORMATION
  Report Type: Report from Study
  Country: SG (occurrence: SG)
  Receive Date: 20190912
  Receipt Date: 20190912
  Transmission Date: 20191005
  Serious: Yes (Hospitalization)
  Sender: FDA-Public Use
  Company Number: PHHO2016SG011062

PATIENT
  Age: 66 Year
  Sex: Male
  Weight: 64.5 kg

DRUGS (11)
  1. LEE011 [Suspect]
     Active Substance: RIBOCICLIB
     Indication: LIPOSARCOMA
     Dosage: 400 MG, QD (2 WEEK ON/2 WEEK OFF)
     Route: 048
     Dates: start: 20160712, end: 20160724
  2. LEE011 [Suspect]
     Active Substance: RIBOCICLIB
     Dosage: 400 MG, QD (2 WEEK ON/2 WEEK OFF)
     Route: 048
     Dates: start: 20160725, end: 20160725
  3. HDM201 [Suspect]
     Active Substance: SIREMADLIN
     Dosage: 15 MG, QD
     Route: 048
     Dates: start: 20160809, end: 20160821
  4. HDM201 [Suspect]
     Active Substance: SIREMADLIN
     Indication: LIPOSARCOMA
     Dosage: 15 MG, QD (2 WEEK ON/2 WEEK OFF)
     Route: 048
     Dates: start: 20160712, end: 20160724
  5. HDM201 [Suspect]
     Active Substance: SIREMADLIN
     Dosage: 0 MG, UNK
     Route: 048
     Dates: start: 20160822, end: 20160822
  6. HDM201 [Suspect]
     Active Substance: SIREMADLIN
     Dosage: 15 MG, QD
     Route: 048
     Dates: start: 20160725, end: 20160725
  7. LEE011 [Suspect]
     Active Substance: RIBOCICLIB
     Dosage: 0 MG, UNK
     Route: 048
     Dates: start: 20160726, end: 20160808
  8. HDM201 [Suspect]
     Active Substance: SIREMADLIN
     Dosage: 0 MG, UNK
     Route: 048
     Dates: start: 20160726, end: 20160808
  9. LEE011 [Suspect]
     Active Substance: RIBOCICLIB
     Dosage: 400 MG, QD (2 WEEK ON/2 WEEK OFF)
     Route: 048
     Dates: start: 20160822, end: 20160822
  10. HDM201 [Suspect]
     Active Substance: SIREMADLIN
     Dosage: 15 MG, QD
     Route: 048
     Dates: start: 20060109, end: 20160821
  11. LEE011 [Suspect]
     Active Substance: RIBOCICLIB
     Dosage: 400 MG, QD (2 WEEK ON/2 WEEK OFF)
     Route: 048
     Dates: start: 20160809, end: 20160821

REACTIONS (3)
  - Neutrophil count decreased [Recovered/Resolved]
  - Platelet count decreased [Recovered/Resolved]
  - Anaemia [Recovered/Resolved]

NARRATIVE: CASE EVENT DATE: 20160725
